FAERS Safety Report 20860640 (Version 1)
Quarter: 2022Q2

REPORT INFORMATION
  Report Type: Other
  Country: US (occurrence: None)
  Receive Date: 20220523
  Receipt Date: 20220523
  Transmission Date: 20220721
  Serious: No
  Sender: FDA-Public Use
  Company Number: US-ROCHE-3101402

PATIENT
  Age: 40 Year
  Sex: Female
  Weight: 127.12 kg

DRUGS (3)
  1. OCREVUS [Suspect]
     Active Substance: OCRELIZUMAB
     Indication: Relapsing-remitting multiple sclerosis
     Dosage: 600 MG Q 6 MONTHS:? 300 MG VIAL
     Route: 042
  2. LISINOPRIL [Concomitant]
     Active Substance: LISINOPRIL
  3. LASIX [Concomitant]
     Active Substance: FUROSEMIDE

REACTIONS (1)
  - COVID-19 [Not Recovered/Not Resolved]

NARRATIVE: CASE EVENT DATE: 20220101
